FAERS Safety Report 8472363-1 (Version None)
Quarter: 2012Q2

REPORT INFORMATION
  Report Type: 
  Country: None (occurrence: None)
  Receive Date: 20120627
  Receipt Date: 20120621
  Transmission Date: 20120825
  Serious: Yes (Hospitalization, Other)
  Sender: FDA-Public Use
  Company Number: US-ACTELION-A-NJ2012-64180

PATIENT

DRUGS (10)
  1. DILANTIN [Concomitant]
  2. BACTRIM [Concomitant]
  3. CELEBREX [Concomitant]
  4. ENBREL [Concomitant]
  5. PROAIR HFA [Concomitant]
  6. TRACLEER [Suspect]
     Indication: PULMONARY ARTERIAL HYPERTENSION
     Dosage: UNK
     Route: 048
     Dates: start: 20080918
  7. TRAMADOL HCL [Concomitant]
  8. CARDIZEM [Concomitant]
  9. POTASSIUM CHLORIDE [Concomitant]
  10. LASIX [Concomitant]

REACTIONS (4)
  - PNEUMONIA [None]
  - COUGH [None]
  - DYSPNOEA [None]
  - THYROIDECTOMY [None]
